FAERS Safety Report 6479818-X (Version None)
Quarter: 2009Q4

REPORT INFORMATION
  Report Type: 
  Country: None (occurrence: None)
  Receive Date: 20091119
  Receipt Date: 20090821
  Transmission Date: 20100525
  Serious: No
  Sender: FDA-Public Use
  Company Number: WAES 0908USA03798

PATIENT
  Age: 55 Year
  Sex: Female
  Weight: 116.5744 kg

DRUGS (11)
  1. JANUVIA [Suspect]
     Dosage: 100 MG/DAILY/PO
     Route: 048
     Dates: start: 20090816
  2. CYMBALTA [Concomitant]
  3. HYZAAR [Concomitant]
  4. LANTUS [Concomitant]
  5. LYRICA [Concomitant]
  6. URELLE [Concomitant]
  7. BACLOFEN [Concomitant]
  8. LEVOTHYROXINE SODIUM [Concomitant]
  9. METFORMIN HCL [Concomitant]
  10. OMEPRAZOLE [Concomitant]
  11. TERAZOSIN HYDROCHLORIDE [Concomitant]

REACTIONS (3)
  - BLOOD GLUCOSE INCREASED [None]
  - PAIN [None]
  - SWELLING [None]
